FAERS Safety Report 7691244 (Version 3)
Quarter: 2012Q4

REPORT INFORMATION
  Report Type: 
  Country: GB (occurrence: GB)
  Receive Date: 20101203
  Receipt Date: 20121221
  Transmission Date: 20130627
  Serious: Yes (Other)
  Sender: FDA-Public Use
  Company Number: PHHY2010GB32283

PATIENT
  Sex: Female

DRUGS (5)
  1. CLOZARIL [Suspect]
     Indication: SCHIZOPHRENIA
     Dosage: 500 mg
     Route: 048
     Dates: start: 20020716
  2. IRON SUPPLEMENTS [Concomitant]
  3. OMEPRAZOLE [Concomitant]
  4. ARIPIPRAZOLE [Concomitant]
  5. LAXATIVES [Concomitant]

REACTIONS (3)
  - Urinary tract infection [Unknown]
  - Lower respiratory tract infection [Unknown]
  - Body temperature increased [Unknown]
